FAERS Safety Report 23126952 (Version 1)
Quarter: 2023Q4

REPORT INFORMATION
  Report Type: Spontaneous
  Country: GB (occurrence: GB)
  Receive Date: 20231030
  Receipt Date: 20231030
  Transmission Date: 20240110
  Serious: Yes (Other)
  Sender: FDA-Public Use
  Company Number: GB-SANDOZ-SDZ2023GB047389

PATIENT
  Age: 41 Year
  Sex: Female
  Weight: 86 kg

DRUGS (1)
  1. AMOXICILLIN\CLAVULANATE POTASSIUM [Suspect]
     Active Substance: AMOXICILLIN\CLAVULANATE POTASSIUM
     Indication: Adverse drug reaction
     Dosage: 500MG AMOXICILLIN + 125MG CLAVULANIC ACID 3X A DAY FOR 5 DAYS; ;
     Route: 065
     Dates: start: 20231023, end: 20231025

REACTIONS (2)
  - Nightmare [Unknown]
  - Dizziness [Not Recovered/Not Resolved]

NARRATIVE: CASE EVENT DATE: 20231023
